FAERS Safety Report 8300415-5 (Version None)
Quarter: 2012Q2

REPORT INFORMATION
  Report Type: 
  Country: None (occurrence: None)
  Receive Date: 20120420
  Receipt Date: 20120419
  Transmission Date: 20120825
  Serious: Yes (Other)
  Sender: FDA-Public Use
  Company Number: US-PFIZER INC-2012097693

PATIENT
  Sex: Male
  Weight: 99.8 kg

DRUGS (4)
  1. CHANTIX [Suspect]
     Indication: SMOKING CESSATION THERAPY
     Dosage: 0.5 MG, DAILY
     Route: 048
     Dates: start: 20120401
  2. CHANTIX [Suspect]
     Dosage: 0.5 MG, UNK
  3. PERCOCET [Concomitant]
     Indication: SURGERY
     Dosage: 5 MG, 2X/DAY
     Dates: start: 20110101
  4. PERCOCET [Concomitant]

REACTIONS (3)
  - DISCOMFORT [None]
  - CHEST DISCOMFORT [None]
  - INSOMNIA [None]
